FAERS Safety Report 15603407 (Version 2)
Quarter: 2018Q4

REPORT INFORMATION
  Report Type: Spontaneous
  Country: US (occurrence: US)
  Receive Date: 20181109
  Receipt Date: 20181120
  Transmission Date: 20190205
  Serious: Yes (Other)
  Sender: FDA-Public Use
  Company Number: US-PFIZER INC-2018451364

PATIENT
  Age: 70 Year
  Sex: Female

DRUGS (4)
  1. INDERAL LA [Suspect]
     Active Substance: PROPRANOLOL HYDROCHLORIDE
     Indication: CARDIAC FLUTTER
     Dosage: 1 DF, 1X/DAY (1 CAPSULE BY MOUTH ONCE DAILY IN PM)
     Route: 048
     Dates: start: 2008
  2. INDERAL LA [Suspect]
     Active Substance: PROPRANOLOL HYDROCHLORIDE
     Indication: SUPRAVENTRICULAR TACHYCARDIA
  3. ZETIA [Concomitant]
     Active Substance: EZETIMIBE
     Indication: BLOOD CHOLESTEROL INCREASED
     Dosage: UNK
  4. NEXIUM [ESOMEPRAZOLE SODIUM] [Concomitant]
     Indication: GASTROOESOPHAGEAL REFLUX DISEASE
     Dosage: UNK

REACTIONS (3)
  - Off label use [Unknown]
  - Condition aggravated [Recovering/Resolving]
  - Cardiac flutter [Recovering/Resolving]

NARRATIVE: CASE EVENT DATE: 2008
